FAERS Safety Report 7867258-8 (Version None)
Quarter: 2011Q4

REPORT INFORMATION
  Report Type: 
  Country: None (occurrence: None)
  Receive Date: 20111028
  Receipt Date: 20111019
  Transmission Date: 20120403
  Serious: Yes (Other)
  Sender: FDA-Public Use
  Company Number: US-ASTRAZENECA-2010SE23864

PATIENT
  Age: 72 Year
  Sex: Male

DRUGS (4)
  1. CRESTOR [Suspect]
     Route: 048
  2. ATACAND [Suspect]
     Route: 048
  3. TOPROL-XL [Suspect]
     Route: 048
  4. WATER PILL [Concomitant]

REACTIONS (12)
  - POLYP [None]
  - PHOTOPSIA [None]
  - CARDIAC DISORDER [None]
  - PERICARDIAL FIBROSIS [None]
  - BLOOD GLUCOSE INCREASED [None]
  - BLINDNESS UNILATERAL [None]
  - HEART VALVE INCOMPETENCE [None]
  - TOOTH FRACTURE [None]
  - BLOOD GLUCOSE DECREASED [None]
  - DIZZINESS [None]
  - ROAD TRAFFIC ACCIDENT [None]
  - DIABETES MELLITUS [None]
